FAERS Safety Report 7656573-9 (Version None)
Quarter: 2011Q3

REPORT INFORMATION
  Report Type: 
  Country: None (occurrence: None)
  Receive Date: 20110804
  Receipt Date: 20110328
  Transmission Date: 20111222
  Serious: No
  Sender: FDA-Public Use
  Company Number: US-BAUSCH-2011BL002017

PATIENT
  Age: 49 Year
  Sex: Male

DRUGS (4)
  1. OPCON-A [Suspect]
     Route: 047
     Dates: start: 20110328, end: 20110328
  2. OPCON-A [Suspect]
     Indication: EYE PRURITUS
     Route: 047
     Dates: start: 20110301, end: 20110301
  3. OPCON-A [Suspect]
     Route: 047
     Dates: start: 20110328, end: 20110328
  4. OPCON-A [Suspect]
     Indication: OCULAR HYPERAEMIA
     Route: 047
     Dates: start: 20110301, end: 20110301

REACTIONS (5)
  - EYE SWELLING [None]
  - LACRIMATION INCREASED [None]
  - OCULAR HYPERAEMIA [None]
  - EYE IRRITATION [None]
  - CONDITION AGGRAVATED [None]
